FAERS Safety Report 6160399-5 (Version None)
Quarter: 2009Q2

REPORT INFORMATION
  Report Type: 
  Country: None (occurrence: None)
  Receive Date: 20090420
  Receipt Date: 20090409
  Transmission Date: 20091009
  Serious: Yes (Other)
  Sender: FDA-Public Use
  Company Number: US-JNJFOC-20090402887

PATIENT
  Age: 29 Year
  Sex: Female
  Weight: 75.3 kg

DRUGS (13)
  1. INVEGA [Suspect]
     Indication: BIPOLAR DISORDER
     Route: 048
  2. INVEGA [Suspect]
     Indication: ANXIETY
     Route: 048
  3. LEXAPRO [Concomitant]
     Indication: DEPRESSION
  4. WELLBUTRIN [Concomitant]
     Indication: DEPRESSION
     Route: 048
  5. CITALOPRAM HYDROBROMIDE [Concomitant]
     Indication: DEPRESSION
     Route: 048
  6. AMBIEN CR [Concomitant]
     Indication: SLEEP DISORDER THERAPY
     Route: 048
  7. VYVANSE [Concomitant]
     Indication: DISTURBANCE IN ATTENTION
     Route: 048
  8. ADDERALL 10 [Concomitant]
     Indication: DISTURBANCE IN ATTENTION
     Route: 048
  9. AMITIZA [Concomitant]
     Indication: IRRITABLE BOWEL SYNDROME
     Route: 048
  10. PREMARIN [Concomitant]
     Indication: HORMONE REPLACEMENT THERAPY
     Route: 048
  11. OXYCONTIN [Concomitant]
     Indication: PAIN
     Route: 048
  12. VICOPROFEN [Concomitant]
     Indication: PAIN
     Route: 048
  13. BENTYL [Concomitant]
     Indication: IRRITABLE BOWEL SYNDROME
     Route: 048

REACTIONS (5)
  - AKATHISIA [None]
  - DEPRESSION [None]
  - FATIGUE [None]
  - NAUSEA [None]
  - WEIGHT DECREASED [None]
